FAERS Safety Report 7372233-6 (Version None)
Quarter: 2011Q1

REPORT INFORMATION
  Report Type: 
  Country: None (occurrence: None)
  Receive Date: 20110324
  Receipt Date: 20110316
  Transmission Date: 20110831
  Serious: Yes (Hospitalization)
  Sender: FDA-Public Use
  Company Number: A0751229A

PATIENT
  Sex: Female

DRUGS (1)
  1. AVANDIA [Suspect]
     Dosage: 8MG PER DAY
     Route: 048
     Dates: start: 20021101, end: 20070826

REACTIONS (3)
  - CARDIAC DISORDER [None]
  - ARTERIAL OCCLUSIVE DISEASE [None]
  - HEART RATE IRREGULAR [None]
